FAERS Safety Report 4536394-6 (Version None)
Quarter: 2004Q4

REPORT INFORMATION
  Report Type: 
  Country: None (occurrence: None)
  Receive Date: 20041223
  Receipt Date: 20040917
  Transmission Date: 20050328
  Serious: No
  Sender: FDA-Public Use
  Company Number: US-GLAXOSMITHKLINE-A0526215A

PATIENT
  Sex: Female

DRUGS (11)
  1. FLONASE [Suspect]
     Dosage: 2PUFF TWICE PER DAY
     Route: 045
     Dates: start: 20010101, end: 20030101
  2. ALBUTEROL [Concomitant]
  3. FLOVENT [Concomitant]
  4. SUDAFED S.A. [Concomitant]
  5. RELAFEN [Concomitant]
  6. ROBAXIN [Concomitant]
  7. TRAZODONE HCL [Concomitant]
     Route: 065
  8. PROTONIX [Concomitant]
  9. HYDROXYZINE HYDROCHLORIDE [Concomitant]
  10. POTASSIUM [Concomitant]
  11. LASIX [Concomitant]

REACTIONS (1)
  - EPISTAXIS [None]
